FAERS Safety Report 8553630-X (Version None)
Quarter: 2012Q3

REPORT INFORMATION
  Report Type: 
  Country: None (occurrence: None)
  Receive Date: 20120731
  Receipt Date: 20120724
  Transmission Date: 20120928
  Serious: Yes (Hospitalization)
  Sender: FDA-Public Use
  Company Number: PHHY2012PT063644

PATIENT
  Age: 9 Month
  Sex: Male

DRUGS (2)
  1. METHYLPREDNISOLONE [Suspect]
     Dosage: 1.5 MG/KG,
  2. METHYLPREDNISOLONE [Suspect]
     Indication: GASTROINTESTINAL DISORDER
     Dosage: 2 MG/KG, UNK
     Route: 042

REACTIONS (6)
  - PANNICULITIS [None]
  - RASH ERYTHEMATOUS [None]
  - HYPERTENSION [None]
  - STREPTOCOCCAL INFECTION [None]
  - SUBCUTANEOUS NODULE [None]
  - SEPTIC SHOCK [None]
